FAERS Safety Report 9423615 (Version 1)
Quarter: 2013Q3

REPORT INFORMATION
  Report Type: Spontaneous
  Country: JP (occurrence: JP)
  Receive Date: 20130726
  Receipt Date: 20130726
  Transmission Date: 20140515
  Serious: Yes (Hospitalization)
  Sender: FDA-Public Use
  Company Number: JP-OTSUKA-JP-2013-12570

PATIENT
  Age: 75 Year
  Sex: Male

DRUGS (1)
  1. SAMSCA [Suspect]
     Dosage: 3.75 MG MILLIGRAM(S), QAM
     Route: 048

REACTIONS (2)
  - Anaemia [Unknown]
  - Renal impairment [Unknown]
